FAERS Safety Report 7200379-1 (Version None)
Quarter: 2010Q4

REPORT INFORMATION
  Report Type: 
  Country: None (occurrence: None)
  Receive Date: 20101228
  Receipt Date: 20101221
  Transmission Date: 20110411
  Serious: Yes (Death, Hospitalization, Disabling, Other)
  Sender: FDA-Public Use
  Company Number: JP-BAYER-200912711BYL

PATIENT
  Sex: Male
  Weight: 50 kg

DRUGS (21)
  1. NEXAVAR [Suspect]
     Route: 048
     Dates: start: 20090704, end: 20090728
  2. NEXAVAR [Suspect]
     Route: 048
     Dates: start: 20090729, end: 20091125
  3. MUCOTRON [Concomitant]
     Dosage: 750 MG, QD
     Route: 048
  4. MUCOSIL-10 [Concomitant]
     Dosage: 45 MG, QD
     Route: 048
  5. FLIVAS [Concomitant]
     Dosage: 75 MG, QD
     Route: 048
  6. TULOBUTEROL [Concomitant]
     Dosage: 2 MG, QD
     Route: 062
  7. ARICEPT [Concomitant]
     Dosage: 5 MG, QD
     Route: 048
  8. PARIET [Concomitant]
     Dosage: 10 MG, QD
     Route: 048
  9. ETODOLAC [Concomitant]
     Dosage: 400 MG, QD
     Route: 048
  10. MITIGLINIDE [Concomitant]
     Dosage: SINCE BEFORE ADMINISTRATION
     Route: 048
  11. LENDORMIN [Concomitant]
     Dosage: 1 DF (DAILY DOSE), , ORAL
     Route: 048
     Dates: start: 20091014
  12. SLOW-K [Concomitant]
     Dosage: 2400 MG, QD
     Route: 048
     Dates: start: 20091210, end: 20091215
  13. PHELLOBERIN A [BERBERINE HYDROCHLORIDE,GERANIUM THUNBERGII, HERB EXTRA [Concomitant]
     Dosage: 6 DF (DAILY DOSE), , ORAL
     Route: 048
     Dates: start: 20091212, end: 20091217
  14. ALBUMINAR [Concomitant]
     Dosage: 50 ML, QD
     Route: 042
     Dates: start: 20091204, end: 20091210
  15. FUROSEMIDE [Concomitant]
     Dosage: 20 MG (DAILY DOSE), , INTRAVENOUS
     Route: 042
     Dates: start: 20091204, end: 20091208
  16. FUROSEMIDE [Concomitant]
     Dosage: 20 MG (DAILY DOSE), , INTRAVENOUS
     Route: 042
     Dates: start: 20091215, end: 20091218
  17. FUROSEMIDE [Concomitant]
     Dosage: 20 MG (DAILY DOSE), , INTRAVENOUS
     Route: 042
     Dates: start: 20100106, end: 20100113
  18. TERUFIS [Concomitant]
     Dosage: 500 ML, QD
     Route: 042
     Dates: start: 20100104, end: 20100113
  19. MITIGLINIDE [Concomitant]
     Dosage: 30 MG, QD
     Route: 048
  20. LOXOPROFEN SODIUM [Concomitant]
     Dosage: 120 MG, PRN
     Route: 048
     Dates: start: 20080515, end: 20100114
  21. LOXOPROFEN SODIUM [Concomitant]
     Dosage: 60 MG, PRN
     Route: 048

REACTIONS (14)
  - ANAEMIA [None]
  - ASCITES [None]
  - C-REACTIVE PROTEIN INCREASED [None]
  - DELIRIUM [None]
  - DIARRHOEA [None]
  - HAEMOBILIA [None]
  - HEPATIC ENCEPHALOPATHY [None]
  - HYPOKALAEMIA [None]
  - LIVER ABSCESS [None]
  - MOUTH HAEMORRHAGE [None]
  - OEDEMA DUE TO RENAL DISEASE [None]
  - OESOPHAGEAL CANDIDIASIS [None]
  - PLATELET COUNT DECREASED [None]
  - STOMATITIS [None]
